FAERS Safety Report 4897627-X (Version None)
Quarter: 2006Q1

REPORT INFORMATION
  Report Type: 
  Country: None (occurrence: None)
  Receive Date: 20060201
  Receipt Date: 20060120
  Transmission Date: 20060701
  Serious: Yes (Hospitalization)
  Sender: FDA-Public Use
  Company Number: FR-JNJFOC-20050800092

PATIENT
  Age: 81 Year
  Sex: Female

DRUGS (10)
  1. TOPALGIC [Suspect]
     Indication: DRUG USE FOR UNKNOWN INDICATION
     Route: 048
  2. LASILIX [Interacting]
     Indication: ESSENTIAL HYPERTENSION
     Route: 048
  3. TEMESTA [Interacting]
     Indication: ANXIETY
     Route: 048
  4. PROZAC [Interacting]
     Indication: DEPRESSION
     Route: 048
  5. ALDACTONE [Interacting]
     Indication: DRUG USE FOR UNKNOWN INDICATION
     Route: 048
  6. LEXOMIL [Interacting]
     Indication: DRUG USE FOR UNKNOWN INDICATION
     Route: 048
  7. DIFFU K [Concomitant]
     Route: 048
  8. MOPRAL [Concomitant]
     Route: 048
  9. DISCOTRINE [Concomitant]
     Route: 062
  10. PREVISCAN [Concomitant]
     Route: 048

REACTIONS (3)
  - CONFUSIONAL STATE [None]
  - DRUG INTERACTION [None]
  - HYPONATRAEMIA [None]
